FAERS Safety Report 4462871-2 (Version None)
Quarter: 2004Q3

REPORT INFORMATION
  Report Type: 
  Country: None (occurrence: None)
  Receive Date: 20040930
  Receipt Date: 20040824
  Transmission Date: 20050211
  Serious: Yes (Other)
  Sender: FDA-Public Use
  Company Number: 200416368US

PATIENT
  Age: 70 Year
  Sex: Male

DRUGS (5)
  1. TAXOTERE [Suspect]
     Indication: PROSTATE CANCER METASTATIC
     Route: 042
     Dates: start: 20040517, end: 20040823
  2. PRAVACHOL [Concomitant]
     Dosage: DOSE: UNK
  3. ASPIRIN [Concomitant]
     Route: 048
  4. MV [Concomitant]
     Dosage: DOSE: UNK
  5. VIOXX [Concomitant]

REACTIONS (3)
  - RETINAL HAEMORRHAGE [None]
  - VISION BLURRED [None]
  - VITREOUS FLOATERS [None]
